FAERS Safety Report 16485954 (Version 5)
Quarter: 2019Q3

REPORT INFORMATION
  Report Type: Spontaneous
  Country: FI (occurrence: FI)
  Receive Date: 20190627
  Receipt Date: 20190903
  Transmission Date: 20191004
  Serious: Yes (Other)
  Sender: FDA-Public Use
  Company Number: FI-SA-2019SA076919

PATIENT
  Age: 51 Year
  Sex: Female

DRUGS (2)
  1. AUBAGIO [Suspect]
     Active Substance: TERIFLUNOMIDE
     Indication: MULTIPLE SCLEROSIS
     Dosage: UNK
     Dates: start: 2018
  2. BEDROCAN [Suspect]
     Active Substance: CANNABIS SATIVA SUBSP. SATIVA FLOWERING TOP
     Indication: NEURALGIA
     Dosage: UNK

REACTIONS (4)
  - CSF oligoclonal band present [Unknown]
  - Neoplasm [Unknown]
  - Protein total increased [Unknown]
  - Blood immunoglobulin G increased [Unknown]

NARRATIVE: CASE EVENT DATE: 2019
